FAERS Safety Report 5216217-2 (Version None)
Quarter: 2007Q1

REPORT INFORMATION
  Report Type: 
  Country: None (occurrence: None)
  Receive Date: 20070123
  Receipt Date: 20070119
  Transmission Date: 20070707
  Serious: Yes (Life-Threatening)
  Sender: FDA-Public Use
  Company Number: GB-SHR-GB-2006-023284

PATIENT
  Sex: Male

DRUGS (13)
  1. ULTRAVIST 300 [Suspect]
     Indication: ACUTE MYOCARDIAL INFARCTION
     Route: 042
     Dates: start: 20060616, end: 20060616
  2. REOPRO [Suspect]
     Indication: ACUTE MYOCARDIAL INFARCTION
     Dosage: UNK, UNK
     Route: 042
     Dates: start: 20060616, end: 20060616
  3. ASPIRIN [Concomitant]
     Indication: ANGINA PECTORIS
     Dosage: 75 MG, UNK
  4. ATENOLOL [Concomitant]
     Indication: ANGINA PECTORIS
     Dosage: 50 MG, UNK
  5. ATORVASTATIN CALCIUM [Concomitant]
     Indication: ANGINA PECTORIS
     Dosage: 10 MG, UNK
  6. BENDROFLUAZIDE [Concomitant]
     Indication: ANGINA PECTORIS
     Dosage: 2.5 MG, UNK
  7. CLOPIDOGREL [Concomitant]
     Indication: ANGINA PECTORIS
     Dosage: 75 MG, UNK
  8. GLICLAZIDE [Concomitant]
     Dosage: 80 MG, UNK
  9. GTN-S [Concomitant]
     Indication: ANGINA PECTORIS
     Route: 042
  10. LIGNOCAINE [Concomitant]
     Indication: ANGINA PECTORIS
     Dosage: UNK, UNK
  11. METFORMIN HCL [Concomitant]
     Dosage: 1350 MG, UNK
  12. SIMVASTATIN [Concomitant]
     Indication: ANGINA PECTORIS
     Dosage: 40 MG, UNK
  13. SUCCINYLATED GELATIN [Concomitant]

REACTIONS (4)
  - DYSPNOEA [None]
  - ERYTHEMA [None]
  - HYPOTENSION [None]
  - OEDEMA [None]
